FAERS Safety Report 4910168-6 (Version None)
Quarter: 2006Q1

REPORT INFORMATION
  Report Type: 
  Country: None (occurrence: None)
  Receive Date: 20060209
  Receipt Date: 20060201
  Transmission Date: 20060701
  Serious: Yes (Death, Hospitalization, Other)
  Sender: FDA-Public Use
  Company Number: USA-2005-0021453

PATIENT
  Age: 20 Year
  Sex: Male
  Weight: 90.7 kg

DRUGS (1)
  1. OXYCODONE HCL [Suspect]

REACTIONS (12)
  - ACCIDENTAL OVERDOSE [None]
  - AREFLEXIA [None]
  - BRAIN HERNIATION [None]
  - BRAIN OEDEMA [None]
  - CARDIAC ARREST [None]
  - HYPOTENSION [None]
  - HYPOTHERMIA [None]
  - ISCHAEMIC HEPATITIS [None]
  - LOSS OF CONSCIOUSNESS [None]
  - NEUROLOGICAL EXAMINATION ABNORMAL [None]
  - PNEUMONIA ASPIRATION [None]
  - RENAL FAILURE [None]
